FAERS Safety Report 26026181 (Version 1)
Quarter: 2025Q4

REPORT INFORMATION
  Report Type: Spontaneous
  Country: US (occurrence: None)
  Receive Date: 20251110
  Receipt Date: 20251110
  Transmission Date: 20260118
  Serious: Yes (Disabling, Other)
  Sender: FDA-CTU
  Company Number: None

PATIENT
  Age: 22 Year
  Sex: Male
  Weight: 74.25 kg

DRUGS (6)
  1. MINOXIDIL [Suspect]
     Active Substance: MINOXIDIL
     Indication: Alopecia
     Dosage: OTHER QUANTITY : .5 CAPFUL;?FREQUENCY : TWICE A DAY;?
     Route: 061
     Dates: start: 20190501, end: 20190701
  2. ADDERALL XR [Concomitant]
     Active Substance: AMPHETAMINE ASPARTATE\AMPHETAMINE SULFATE\DEXTROAMPHETAMINE SACCHARATE\DEXTROAMPHETAMINE SULFATE
  3. LEXAPRO [Concomitant]
     Active Substance: ESCITALOPRAM OXALATE
  4. Penile [Concomitant]
  5. Prosthesis [Concomitant]
  6. VITAMINS [Concomitant]
     Active Substance: VITAMINS

REACTIONS (5)
  - Erectile dysfunction [None]
  - Palpitations [None]
  - Anxiety [None]
  - Emotional distress [None]
  - Mental disorder [None]

NARRATIVE: CASE EVENT DATE: 20190601
